FAERS Safety Report 12947611 (Version 1)
Quarter: 2016Q4

REPORT INFORMATION
  Report Type: Spontaneous
  Country: US (occurrence: US)
  Receive Date: 20161116
  Receipt Date: 20161116
  Transmission Date: 20170207
  Serious: No
  Sender: FDA-Public Use
  Company Number: US-MYLANLABS-2016M1007530

PATIENT
  Sex: Male

DRUGS (1)
  1. PROCHLORPERAZINE MALEATE TABLETS, USP [Suspect]
     Active Substance: PROCHLORPERAZINE MALEATE
     Dosage: 10 MG, Q6H PRN
     Route: 048
     Dates: start: 201511

REACTIONS (1)
  - Chromaturia [Not Recovered/Not Resolved]

NARRATIVE: CASE EVENT DATE: 201602
